FAERS Safety Report 6987341-9 (Version None)
Quarter: 2010Q3

REPORT INFORMATION
  Report Type: 
  Country: None (occurrence: None)
  Receive Date: 20100827
  Receipt Date: 20100720
  Transmission Date: 20110219
  Serious: No
  Sender: FDA-Public Use
  Company Number: 013339

PATIENT
  Sex: Female
  Weight: 77.1 kg

DRUGS (4)
  1. LACOSAMIDE [Suspect]
     Indication: CONVULSION
     Dosage: (50 MG BID ORAL), (100 MG BID ORAL)
     Route: 048
     Dates: start: 20100101, end: 20100531
  2. LACOSAMIDE [Suspect]
     Indication: CONVULSION
     Dosage: (50 MG BID ORAL), (100 MG BID ORAL)
     Route: 048
     Dates: start: 20100531, end: 20100607
  3. CARBAMAZEPINE [Concomitant]
  4. LAMOTRIGINE [Concomitant]

REACTIONS (2)
  - PRURITUS [None]
  - RASH [None]
